FAERS Safety Report 9960362 (Version 1)
Quarter: 2014Q1

REPORT INFORMATION
  Report Type: Spontaneous
  Country: US (occurrence: US)
  Receive Date: 20140305
  Receipt Date: 20140305
  Transmission Date: 20141002
  Serious: Yes (Hospitalization)
  Sender: FDA-Public Use
  Company Number: US-BRISTOL-MYERS SQUIBB COMPANY-20243242

PATIENT
  Age: 80 Year
  Sex: Female

DRUGS (1)
  1. COUMADIN [Suspect]
     Indication: ATRIAL FIBRILLATION
     Dosage: INCREASED TO 3MG FOR 3 DAY PER WEEK

REACTIONS (3)
  - Polyp [Unknown]
  - Cardiac pacemaker insertion [Unknown]
  - International normalised ratio decreased [Unknown]
